FAERS Safety Report 12504397 (Version 1)
Quarter: 2016Q2

REPORT INFORMATION
  Report Type: Spontaneous
  Country: US (occurrence: TH)
  Receive Date: 20160628
  Receipt Date: 20160628
  Transmission Date: 20160815
  Serious: Yes (Hospitalization, Other)
  Sender: FDA-Public Use
  Company Number: US-PFIZER INC-2016316688

PATIENT
  Age: 17 Year
  Sex: Male

DRUGS (1)
  1. XANAX [Suspect]
     Active Substance: ALPRAZOLAM
     Dosage: 2 DF, DAILY
     Dates: end: 20160616

REACTIONS (7)
  - Drug withdrawal syndrome [Unknown]
  - Delusion [Not Recovered/Not Resolved]
  - Hallucination [Not Recovered/Not Resolved]
  - Agitation [Unknown]
  - Product use issue [Unknown]
  - Delirium [Unknown]
  - Acute psychosis [Unknown]

NARRATIVE: CASE EVENT DATE: 201606
